FAERS Safety Report 7624084-2 (Version None)
Quarter: 2011Q3

REPORT INFORMATION
  Report Type: 
  Country: None (occurrence: None)
  Receive Date: 20110720
  Receipt Date: 20110711
  Transmission Date: 20111222
  Serious: Yes (Hospitalization, Other)
  Sender: FDA-Public Use
  Company Number: PHHY2011US25105

PATIENT
  Sex: Female
  Weight: 60.771 kg

DRUGS (19)
  1. NUVIGIL [Concomitant]
     Dosage: UNK UKN, UNK
  2. BOTOX [Concomitant]
     Dosage: 100 U, UNK
     Dates: start: 20110610
  3. LYRICA [Concomitant]
     Dosage: UNK UKN, UNK
  4. LOSARTAN [Concomitant]
     Dosage: UNK UKN, UNK
  5. PERCOCET [Concomitant]
  6. TRAMADOL HCL [Concomitant]
  7. AMITIZA [Concomitant]
     Dosage: UNK UKN, UNK
  8. BOTOX [Concomitant]
     Dosage: 100 U, UNK
     Dates: start: 20110615
  9. METOPROLOL TARTRATE [Concomitant]
     Dosage: UNK UKN, UNK
  10. VITAMIN B-12 [Concomitant]
     Dosage: UNK UKN, UNK
  11. MIRAPEX [Concomitant]
  12. CALCIUM CARBONATE [Concomitant]
  13. GILENYA [Suspect]
     Indication: RELAPSING-REMITTING MULTIPLE SCLEROSIS
     Dosage: 0.5 MG, QD
     Route: 048
     Dates: start: 20101101, end: 20110621
  14. PROVIGIL [Concomitant]
     Dosage: UNK UKN, UNK
  15. NEXIUM [Concomitant]
     Dosage: UNK UKN, UNK
  16. ESTRACE [Concomitant]
     Dosage: UNK UKN, UNK
  17. BONIVA [Concomitant]
     Dosage: UNK UKN, UNK
  18. PRAMIPEXOLE DIHYDROCHLORIDE [Concomitant]
     Dosage: UNK UKN, UNK
  19. ZANAFLEX [Concomitant]

REACTIONS (37)
  - GENERAL PHYSICAL HEALTH DETERIORATION [None]
  - INFLUENZA [None]
  - MIGRAINE [None]
  - HEADACHE [None]
  - LYMPHOPENIA [None]
  - VOMITING [None]
  - CHRONIC SINUSITIS [None]
  - BLEPHAROSPASM [None]
  - VISUAL IMPAIRMENT [None]
  - TREMOR [None]
  - NUCLEAR MAGNETIC RESONANCE IMAGING BRAIN ABNORMAL [None]
  - NAUSEA [None]
  - UPPER RESPIRATORY TRACT INFECTION [None]
  - SINUSITIS [None]
  - CD4/CD8 RATIO DECREASED [None]
  - NEURALGIA [None]
  - HYPERREFLEXIA [None]
  - NECK PAIN [None]
  - ALLODYNIA [None]
  - MONOCYTE COUNT INCREASED [None]
  - GAIT DISTURBANCE [None]
  - VARICELLA VIRUS TEST POSITIVE [None]
  - ANION GAP DECREASED [None]
  - URINARY TRACT INFECTION [None]
  - SPINAL OSTEOARTHRITIS [None]
  - CERVICAL SPINAL STENOSIS [None]
  - CD8 LYMPHOCYTES INCREASED [None]
  - COUGH [None]
  - BRONCHITIS [None]
  - CD4 LYMPHOCYTES DECREASED [None]
  - BLOOD CHLORIDE DECREASED [None]
  - LEUKOPENIA [None]
  - PACHYMENINGITIS [None]
  - INTERVERTEBRAL DISC PROTRUSION [None]
  - MULTIPLE SCLEROSIS RELAPSE [None]
  - ENCEPHALOPATHY [None]
  - BLOOD GLUCOSE INCREASED [None]
